FAERS Safety Report 21542612 (Version 2)
Quarter: 2023Q1

REPORT INFORMATION
  Report Type: Report from Study
  Country: US (occurrence: None)
  Receive Date: 20221102
  Receipt Date: 20230103
  Transmission Date: 20230417
  Serious: Yes (Death, Other)
  Sender: FDA-Public Use
  Company Number: 2022A360176

PATIENT
  Age: 27845 Day
  Sex: Female
  Weight: 81.9 kg

DRUGS (12)
  1. TAGRISSO [Suspect]
     Active Substance: OSIMERTINIB
     Dosage: UNKNOWN
     Route: 048
     Dates: start: 20220922
  2. TYLENOL [Concomitant]
     Active Substance: ACETAMINOPHEN
  3. ACETYLCYSTEINE [Concomitant]
     Active Substance: ACETYLCYSTEINE
  4. EZETIMIBE [Concomitant]
     Active Substance: EZETIMIBE
     Route: 048
  5. FLUTICASONE PROPION-SALMETEROL [Concomitant]
  6. LEVOTHYROXINE [Concomitant]
     Active Substance: LEVOTHYROXINE
  7. VITAMIN D [Concomitant]
     Active Substance: VITAMIN D NOS
  8. OSIMERTINIB [Concomitant]
     Active Substance: OSIMERTINIB
     Route: 048
     Dates: start: 20220817
  9. TAMSULOSIN [Concomitant]
     Active Substance: TAMSULOSIN
  10. TRAMADOL [Concomitant]
     Active Substance: TRAMADOL
  11. UBIDECARENONE [Concomitant]
     Active Substance: UBIDECARENONE
  12. PYRROLOQUINOLINE QUINONE [Concomitant]

REACTIONS (3)
  - Death [Fatal]
  - Flank pain [Unknown]
  - Fatigue [Unknown]

NARRATIVE: CASE EVENT DATE: 20221015
